FAERS Safety Report 6803738-1 (Version None)
Quarter: 2010Q2

REPORT INFORMATION
  Report Type: 
  Country: None (occurrence: None)
  Receive Date: 20100628
  Receipt Date: 20100616
  Transmission Date: 20101027
  Serious: Yes (Other)
  Sender: FDA-Public Use
  Company Number: BE-ELI_LILLY_AND_COMPANY-BE201005000822

PATIENT
  Sex: Male

DRUGS (12)
  1. BYETTA [Suspect]
     Dosage: 10UG, 2/D
     Route: 065
     Dates: start: 20091001
  2. GLUCOVANCE [Concomitant]
     Dosage: 500/5.0 UNK, 3/D
     Route: 065
  3. GLUCOPHAGE [Concomitant]
     Dosage: 3 X 850 MG, DAILY (1/D)
     Route: 065
  4. APROVEL [Concomitant]
     Dosage: 300 MG, DAILY (1/D)
     Route: 065
  5. APROVEL [Concomitant]
     Dosage: DECREASED BY HALF, DAILY (1/D)
     Route: 065
  6. APROVEL [Concomitant]
     Dosage: 300 MG, DAILY (1/D)
     Route: 065
  7. INDAPAMIDE [Concomitant]
     Dosage: 2.5 MG, DAILY (1/D)
     Route: 065
  8. INDAPAMIDE [Concomitant]
     Dosage: 2.5 MG, DAILY (1/D)
     Route: 065
  9. NOBITEN [Concomitant]
     Dosage: 5 MG, DAILY (1/D)
     Route: 065
  10. SIMVASTATIN [Concomitant]
     Dosage: 20 MG, DAILY (1/D)
     Route: 065
  11. NOVONORM [Concomitant]
     Dosage: 1 MG, 3/D
     Route: 065
  12. CARVEDILOL [Concomitant]
     Dosage: 25 MG, DAILY (1/D)
     Route: 065

REACTIONS (5)
  - BLOOD PRESSURE DECREASED [None]
  - DECREASED APPETITE [None]
  - MALABSORPTION [None]
  - RENAL FAILURE [None]
  - WEIGHT DECREASED [None]
